FAERS Safety Report 16665646 (Version 1)
Quarter: 2019Q3

REPORT INFORMATION
  Report Type: Spontaneous
  Country: US (occurrence: US)
  Receive Date: 20190620
  Receipt Date: 20190620
  Transmission Date: 20191004
  Serious: Yes (Hospitalization)
  Sender: FDA-Public Use
  Company Number: None

PATIENT
  Age: 71 Year
  Sex: Male
  Weight: 76.2 kg

DRUGS (11)
  1. FENTANYL. [Concomitant]
     Active Substance: FENTANYL
  2. LACTULOSE (START- 5/1/18) [Concomitant]
  3. POTASSIUM-CHLORIDE (START-7/10/18 [Concomitant]
     Dates: start: 20180320, end: 20180426
  4. FUROSEMIDE (START-7/10/18) [Concomitant]
  5. XYCODONE-ACETAMINOPHEN [Concomitant]
  6. METOPROLOL. [Concomitant]
     Active Substance: METOPROLOL
  7. FAMOTIDINE (START-3/10/91 [Concomitant]
  8. MULTIVITAMIN [Concomitant]
     Active Substance: VITAMINS
  9. SORAFENIB [Suspect]
     Active Substance: SORAFENIB
  10. VITAMIN B12 [Concomitant]
     Active Substance: CYANOCOBALAMIN
  11. ONDANSOTRON (START-5/1/18) [Concomitant]

REACTIONS (2)
  - Vomiting [None]
  - Nausea [None]

NARRATIVE: CASE EVENT DATE: 20180424
